FAERS Safety Report 21054325 (Version 2)
Quarter: 2022Q3

REPORT INFORMATION
  Report Type: Report from Study
  Country: US (occurrence: US)
  Receive Date: 20220707
  Receipt Date: 20220831
  Transmission Date: 20221027
  Serious: Yes (Hospitalization, Other)
  Sender: FDA-Public Use
  Company Number: US-PFIZER INC-202200826332

PATIENT
  Age: 84 Year
  Sex: Male

DRUGS (1)
  1. INLYTA [Suspect]
     Active Substance: AXITINIB
     Dosage: 5 MG
     Dates: start: 20220606

REACTIONS (9)
  - Rectal haemorrhage [Unknown]
  - Diverticulitis [Unknown]
  - Anaemia [Unknown]
  - Asthenia [Unknown]
  - Fatigue [Unknown]
  - Dysphonia [Unknown]
  - Pruritus [Unknown]
  - Fall [Unknown]
  - Skin abrasion [Unknown]

NARRATIVE: CASE EVENT DATE: 20220601
